FAERS Safety Report 4964308-3 (Version None)
Quarter: 2006Q1

REPORT INFORMATION
  Report Type: 
  Country: None (occurrence: None)
  Receive Date: 20060331
  Receipt Date: 20060321
  Transmission Date: 20060701
  Serious: Yes (Hospitalization)
  Sender: FDA-Public Use
  Company Number: 2006RL000051

PATIENT
  Age: 44 Year
  Sex: Female
  Weight: 75.7507 kg

DRUGS (8)
  1. OMACOR [Suspect]
     Indication: HYPERTRIGLYCERIDAEMIA
     Dosage: 2 GM; BID; PO
     Route: 048
     Dates: start: 20060101, end: 20060101
  2. AMICAR [Suspect]
     Dosage: 2 GM; BID; PO
     Route: 048
     Dates: start: 20060202, end: 20060215
  3. SYNTHROID [Concomitant]
  4. PREMARIN [Concomitant]
  5. ALLEGRA [Concomitant]
  6. LOPID [Concomitant]
  7. KLONOPIN [Concomitant]
  8. ZEBETA [Concomitant]

REACTIONS (12)
  - ACCIDENTAL EXPOSURE [None]
  - CHEST PAIN [None]
  - DIZZINESS [None]
  - DRUG ADMINISTRATION ERROR [None]
  - DRUG DISPENSING ERROR [None]
  - DYSPNOEA [None]
  - FEELING ABNORMAL [None]
  - HEADACHE [None]
  - MALAISE [None]
  - MEDICATION ERROR [None]
  - SUPRAVENTRICULAR TACHYCARDIA [None]
  - VENTRICULAR TACHYCARDIA [None]
